FAERS Safety Report 9547304 (Version 1)
Quarter: 2013Q2

REPORT INFORMATION
  Report Type: Spontaneous
  Country: US (occurrence: None)
  Receive Date: 20130606
  Receipt Date: 20130606
  Transmission Date: 20140414
  Serious: Yes (Other)
  Sender: FDA-Public Use
  Company Number: 2013PROUSA02604

PATIENT
  Age: 69 Year
  Sex: Male

DRUGS (1)
  1. PROVENGE (SIPLULEUCEL-T) SUSPENSION, 250ML [Suspect]
     Indication: PROSTATE CANCER METASTATIC
     Route: 042
     Dates: start: 20130201, end: 20130201

REACTIONS (1)
  - Diarrhoea [None]
